FAERS Safety Report 12855977 (Version 1)
Quarter: 2016Q4

REPORT INFORMATION
  Report Type: Spontaneous
  Country: US (occurrence: US)
  Receive Date: 20161017
  Receipt Date: 20161017
  Transmission Date: 20170207
  Serious: No
  Sender: FDA-Public Use
  Company Number: None

PATIENT
  Age: 39 Year
  Sex: Female

DRUGS (2)
  1. LORAZEPAM 0.5 MG TABLET TABLET BROKEN IN HALF MTS MEDICATION TECHNOLOGIES [Suspect]
     Active Substance: LORAZEPAM
     Indication: ANXIETY
     Dosage: ?          QUANTITY:10 TABLET(S);?
     Route: 060
  2. MICROGESTIN FE 1/20 [Concomitant]
     Active Substance: ETHINYL ESTRADIOL\NORETHINDRONE ACETATE

REACTIONS (5)
  - Panic attack [None]
  - Initial insomnia [None]
  - Stress [None]
  - Anxiety [None]
  - Product substitution issue [None]

NARRATIVE: CASE EVENT DATE: 20161016
